FAERS Safety Report 10345701 (Version 3)
Quarter: 2014Q3

REPORT INFORMATION
  Report Type: Spontaneous
  Country: JP (occurrence: None)
  Receive Date: 20140723
  Receipt Date: 20140922
  Transmission Date: 20150326
  Serious: Yes (Hospitalization, Other)
  Sender: FDA-Public Use
  Company Number: 2014-JP-0054

PATIENT
  Age: 51 Year
  Sex: Female

DRUGS (2)
  1. FARESTON [Suspect]
     Active Substance: TOREMIFENE CITRATE
     Indication: BREAST CANCER
     Route: 048
     Dates: start: 20100601, end: 20140224
  2. LEUPLIN (LEUPROLIDE ACETATE) [Concomitant]

REACTIONS (1)
  - Intracranial venous sinus thrombosis [None]

NARRATIVE: CASE EVENT DATE: 20140224
